FAERS Safety Report 18474496 (Version 2)
Quarter: 2022Q1

REPORT INFORMATION
  Report Type: Spontaneous
  Country: US (occurrence: US)
  Receive Date: 20201106
  Receipt Date: 20220125
  Transmission Date: 20220423
  Serious: No
  Sender: FDA-Public Use
  Company Number: US-BAYER-2020-239982

PATIENT
  Sex: Female

DRUGS (1)
  1. MIRENA [Suspect]
     Active Substance: LEVONORGESTREL
     Indication: Contraception
     Dosage: 20?G/DAY
     Route: 015
     Dates: start: 201902

REACTIONS (5)
  - Pruritus [Not Recovered/Not Resolved]
  - Hidradenitis [None]
  - Breast pain [None]
  - Axillary pain [None]
  - Genital pain [None]
